FAERS Safety Report 25534413 (Version 2)
Quarter: 2025Q3

REPORT INFORMATION
  Report Type: Spontaneous
  Country: US (occurrence: US)
  Receive Date: 20250709
  Receipt Date: 20250728
  Transmission Date: 20251020
  Serious: No
  Sender: ALKERMES
  Company Number: US-ALKERMES INC.-ALK-2025-001737

PATIENT
  Age: 65 Year
  Sex: Female
  Weight: 70.295 kg

DRUGS (1)
  1. ARISTADA [Suspect]
     Active Substance: ARIPIPRAZOLE LAUROXIL
     Indication: Schizoaffective disorder bipolar type
     Route: 030

REACTIONS (4)
  - Needle issue [Recovered/Resolved]
  - Syringe issue [Recovered/Resolved]
  - Off label use [Unknown]
  - Product solubility abnormal [Recovered/Resolved]

NARRATIVE: CASE EVENT DATE: 20250626
